FAERS Safety Report 16059513 (Version 1)
Quarter: 2019Q1

REPORT INFORMATION
  Report Type: Report from Study
  Country: US (occurrence: US)
  Receive Date: 20190311
  Receipt Date: 20190311
  Transmission Date: 20190418
  Serious: Yes (Hospitalization)
  Sender: FDA-Public Use
  Company Number: US-ACTELION-A-US2019-186240

PATIENT
  Sex: Female
  Weight: 52.15 kg

DRUGS (3)
  1. OPSUMIT [Suspect]
     Active Substance: MACITENTAN
     Indication: PULMONARY ARTERIAL HYPERTENSION
     Dosage: 10 MG, QD
     Route: 048
  2. UPTRAVI [Suspect]
     Active Substance: SELEXIPAG
     Indication: PULMONARY ARTERIAL HYPERTENSION
     Dosage: 1600 MCG, BID
     Route: 048
  3. TADALAFIL. [Concomitant]
     Active Substance: TADALAFIL

REACTIONS (10)
  - Biopsy lung [Unknown]
  - Sinus congestion [Unknown]
  - Gastrointestinal motility disorder [Unknown]
  - Head discomfort [Unknown]
  - Pyrexia [Unknown]
  - Feeling abnormal [Unknown]
  - Vomiting [Unknown]
  - Hypersensitivity [Unknown]
  - Influenza [Unknown]
  - Migraine [Unknown]
